FAERS Safety Report 12600707 (Version 4)
Quarter: 2017Q1

REPORT INFORMATION
  Report Type: Report from Study
  Country: CA (occurrence: CA)
  Receive Date: 20160727
  Receipt Date: 20170329
  Transmission Date: 20170428
  Serious: Yes (Hospitalization, Other)
  Sender: FDA-Public Use
  Company Number: CA-TAKEDA-2016TUS012992

PATIENT
  Age: 62 Year
  Sex: Female

DRUGS (7)
  1. SIMVASTATIN. [Concomitant]
     Active Substance: SIMVASTATIN
     Dosage: 40 MG, QD
  2. DIOVAN [Concomitant]
     Active Substance: VALSARTAN
     Dosage: 80 MG, BID
  3. LANTUS INSLIN [Concomitant]
     Dosage: UNK
  4. HUMALOG [Concomitant]
     Active Substance: INSULIN LISPRO
     Dosage: UNK
  5. IMOVANE [Concomitant]
     Active Substance: ZOPICLONE
     Dosage: 7.5 MG, UNK
  6. WELLBUTRIN [Concomitant]
     Active Substance: BUPROPION HYDROCHLORIDE
     Dosage: 450 MG, QD
  7. VEDOLIZUMAB [Suspect]
     Active Substance: VEDOLIZUMAB
     Indication: CROHN^S DISEASE
     Dosage: 300 MG, UNK
     Route: 042
     Dates: start: 20160623

REACTIONS (12)
  - Impaired healing [Unknown]
  - Weight decreased [Unknown]
  - Mouth ulceration [Not Recovered/Not Resolved]
  - Malaise [Unknown]
  - Pain [Unknown]
  - Pruritus [Not Recovered/Not Resolved]
  - Decreased appetite [Unknown]
  - Erythema [Not Recovered/Not Resolved]
  - Intestinal obstruction [Unknown]
  - Abdominal distension [Unknown]
  - Fungal skin infection [Not Recovered/Not Resolved]
  - Muscle spasms [Unknown]

NARRATIVE: CASE EVENT DATE: 201608
